FAERS Safety Report 21041141 (Version 3)
Quarter: 2022Q3

REPORT INFORMATION
  Report Type: Spontaneous
  Country: US (occurrence: None)
  Receive Date: 20220705
  Receipt Date: 20220719
  Transmission Date: 20221027
  Serious: Yes (Death)
  Sender: FDA-Public Use
  Company Number: US-ROCHE-3131629

PATIENT
  Sex: Male

DRUGS (2)
  1. AVASTIN [Suspect]
     Active Substance: BEVACIZUMAB
     Indication: Malignant peritoneal neoplasm
     Dosage: STRENGTH: 25 MG/ML
     Route: 042
     Dates: start: 20210928
  2. AVASTIN [Suspect]
     Active Substance: BEVACIZUMAB
     Indication: Anaemia

REACTIONS (1)
  - Neoplasm malignant [Fatal]
